FAERS Safety Report 19684641 (Version 1)
Quarter: 2021Q3

REPORT INFORMATION
  Report Type: Spontaneous
  Country: IN (occurrence: IN)
  Receive Date: 20210811
  Receipt Date: 20210811
  Transmission Date: 20211014
  Serious: Yes (Death, Hospitalization)
  Sender: FDA-Public Use
  Company Number: IN-STRIDES ARCOLAB LIMITED-2021SP026153

PATIENT
  Age: 6 Year
  Sex: Male

DRUGS (1)
  1. TACROLIMUS. [Suspect]
     Active Substance: TACROLIMUS
     Indication: LIVER TRANSPLANT
     Dosage: 0.25 MILLIGRAM
     Route: 065

REACTIONS (9)
  - Milk allergy [Fatal]
  - Necrotising colitis [Fatal]
  - Sepsis [Fatal]
  - Septic shock [Fatal]
  - Pneumatosis intestinalis [Fatal]
  - Burkholderia cepacia complex infection [Fatal]
  - Intestinal infarction [Fatal]
  - Gastrointestinal necrosis [Fatal]
  - Intestinal ischaemia [Fatal]
